FAERS Safety Report 19406751 (Version 2)
Quarter: 2021Q2

REPORT INFORMATION
  Report Type: Report from Study
  Country: BR (occurrence: BR)
  Receive Date: 20210611
  Receipt Date: 20210629
  Transmission Date: 20210717
  Serious: Yes (Death, Hospitalization)
  Sender: FDA-Public Use
  Company Number: NVSC2021BR131617

PATIENT
  Age: 58 Year
  Sex: Male
  Weight: 67 kg

DRUGS (7)
  1. NILOTINIB [Suspect]
     Active Substance: NILOTINIB
     Indication: CHRONIC MYELOID LEUKAEMIA
     Dosage: UNK
     Route: 065
     Dates: end: 20200122
  2. IMATINIB. [Suspect]
     Active Substance: IMATINIB MESYLATE
     Indication: CHRONIC MYELOID LEUKAEMIA
     Dosage: UNK
     Route: 065
     Dates: start: 20171219
  3. DASATINIB. [Concomitant]
     Active Substance: DASATINIB
     Indication: LEUKAEMIA
  4. METFORMIN [Concomitant]
     Active Substance: METFORMIN HYDROCHLORIDE
     Indication: DIABETES MELLITUS
     Dosage: UNK
     Route: 048
  5. ALOGLIPTINA [Concomitant]
     Indication: DIABETES MELLITUS
     Dosage: UNK
     Route: 048
  6. DASATINIB. [Concomitant]
     Active Substance: DASATINIB
     Indication: CHRONIC MYELOID LEUKAEMIA
     Dosage: 100 MG, QD
     Route: 048
     Dates: start: 20200123, end: 20210302
  7. HYDROXYUREA. [Concomitant]
     Active Substance: HYDROXYUREA
     Indication: LEUKAEMIA
     Dosage: UNK
     Route: 048

REACTIONS (5)
  - Arthralgia [Unknown]
  - Rhinitis [Unknown]
  - Skin lesion [Unknown]
  - Infected skin ulcer [Unknown]
  - Cerebrovascular accident [Fatal]

NARRATIVE: CASE EVENT DATE: 20200304
